FAERS Safety Report 11008010 (Version 3)
Quarter: 2017Q3

REPORT INFORMATION
  Report Type: Spontaneous
  Country: CN (occurrence: CN)
  Receive Date: 20150410
  Receipt Date: 20170802
  Transmission Date: 20171127
  Serious: Yes (Other)
  Sender: FDA-Public Use
  Company Number: CN-CIPLA LTD.-2015CN02737

PATIENT

DRUGS (5)
  1. GEMCITABINE [Suspect]
     Active Substance: GEMCITABINE\GEMCITABINE HYDROCHLORIDE
     Indication: METASTASES TO LIVER
  2. CONMANA [Suspect]
     Active Substance: ICOTINIB
     Indication: PANCREATIC CARCINOMA STAGE IV
     Dosage: 125 MG, TID
     Route: 065
  3. GEMCITABINE [Suspect]
     Active Substance: GEMCITABINE\GEMCITABINE HYDROCHLORIDE
     Indication: PANCREATIC CARCINOMA STAGE IV
     Dosage: 1000 MG/M2, ON DAYS 1, 8, AND 15 EVERY FOUR WEEKS
     Route: 016
  4. CELECOXIB. [Suspect]
     Active Substance: CELECOXIB
     Indication: ABDOMINAL PAIN
     Dosage: UNK
     Route: 065
  5. CONMANA [Suspect]
     Active Substance: ICOTINIB
     Indication: METASTASES TO LIVER

REACTIONS (5)
  - Jaundice cholestatic [Recovered/Resolved]
  - Dermatitis acneiform [Recovered/Resolved]
  - Bone marrow failure [Recovered/Resolved]
  - Liver injury [Recovered/Resolved]
  - Abdominal pain [Recovered/Resolved]
